FAERS Safety Report 8516052-3 (Version None)
Quarter: 2012Q3

REPORT INFORMATION
  Report Type: 
  Country: None (occurrence: None)
  Receive Date: 20120717
  Receipt Date: 20120511
  Transmission Date: 20120928
  Serious: No
  Sender: FDA-Public Use
  Company Number: US-NOVEN-12US004642

PATIENT
  Sex: Male

DRUGS (5)
  1. FENTANYL [Suspect]
     Indication: PAIN
     Dosage: 100 UG/HR, PATCH EVERY 48 HOURS
     Route: 062
     Dates: start: 20120430
  2. FENTANYL [Suspect]
     Dosage: 75 UG/HR, PATCH EVERY 48 HOURS
     Route: 063
     Dates: start: 20120414
  3. OXYCODONE HCL [Concomitant]
     Indication: PAIN
     Route: 048
  4. FENTANYL [Suspect]
     Dosage: 25 UG/HR, PATCH EVERY 48 HOURS
     Dates: start: 20120322
  5. FENTANYL [Suspect]
     Dosage: 50 UG/HR, PATCH EVERY 48 HOURS
     Dates: start: 20120301

REACTIONS (1)
  - INADEQUATE ANALGESIA [None]
